FAERS Safety Report 13155576 (Version 1)
Quarter: 2017Q1

REPORT INFORMATION
  Report Type: Report from Study
  Country: CA (occurrence: CA)
  Receive Date: 20170126
  Receipt Date: 20170126
  Transmission Date: 20170428
  Serious: Yes (Death)
  Sender: FDA-Public Use
  Company Number: CA-009507513-1701CAN011379

PATIENT
  Age: 95 Year
  Sex: Male

DRUGS (1)
  1. SINGULAIR [Suspect]
     Active Substance: MONTELUKAST SODIUM
     Indication: ASTHMA
     Dosage: 10 MG, QD
     Route: 048

REACTIONS (2)
  - Influenza [Fatal]
  - Lung disorder [Fatal]

NARRATIVE: CASE EVENT DATE: 201612
